FAERS Safety Report 17826393 (Version 6)
Quarter: 2021Q2

REPORT INFORMATION
  Report Type: Spontaneous
  Country: FR (occurrence: FR)
  Receive Date: 20200527
  Receipt Date: 20210414
  Transmission Date: 20210717
  Serious: Yes (Hospitalization, Other)
  Sender: FDA-Public Use
  Company Number: FR-AUROBINDO-AUR-APL-2020-025922

PATIENT
  Age: 65 Year
  Sex: Male

DRUGS (21)
  1. ISAVUCONAZOLE [Suspect]
     Active Substance: ISAVUCONAZOLE
     Indication: OSTEOMYELITIS FUNGAL
     Dosage: 200 MILLIGRAM, ONCE A DAY
     Route: 065
  2. VORICONAZOLE. [Suspect]
     Active Substance: VORICONAZOLE
     Indication: OSTEOMYELITIS FUNGAL
     Dosage: UNK UNK, ONCE A DAY (BID)
     Route: 048
  3. DAPTOMYCIN. [Concomitant]
     Active Substance: DAPTOMYCIN
     Indication: DRUG THERAPY
     Dosage: 2800 MILLIGRAM, ONCE A DAY (11.5 MG/KG)
     Route: 065
  4. ISAVUCONAZOLE [Suspect]
     Active Substance: ISAVUCONAZOLE
     Indication: MEDIASTINITIS
  5. MYCOPHENOLATE MOFETIL. [Suspect]
     Active Substance: MYCOPHENOLATE MOFETIL
     Indication: HEART TRANSPLANT REJECTION
     Dosage: 500 MILLIGRAM, TWO TIMES A DAY
     Route: 065
     Dates: start: 2017
  6. TACROLIMUS. [Suspect]
     Active Substance: TACROLIMUS
     Indication: IMMUNOSUPPRESSANT DRUG THERAPY
  7. VORICONAZOLE. [Suspect]
     Active Substance: VORICONAZOLE
     Indication: MEDIASTINITIS
     Dosage: 6 MILLIGRAM/KILOGRAM, TWO TIMES A DAY, ON FIRST DAY
     Route: 042
  8. AMPHOTERICINE B [Concomitant]
     Active Substance: AMPHOTERICIN B
     Indication: DISSEMINATED ASPERGILLOSIS
     Dosage: 3 MILLIGRAM/KILOGRAM
  9. PREDNISONE TABLET [Suspect]
     Active Substance: PREDNISONE
     Indication: HEART TRANSPLANT REJECTION
     Dosage: 12.5 MILLIGRAM, ONCE A DAY
     Route: 065
     Dates: start: 2017
  10. MYCOPHENOLATE MOFETIL. [Suspect]
     Active Substance: MYCOPHENOLATE MOFETIL
     Indication: IMMUNOSUPPRESSANT DRUG THERAPY
  11. MYCOPHENOLATE MOFETIL. [Suspect]
     Active Substance: MYCOPHENOLATE MOFETIL
     Indication: PRODUCT USED FOR UNKNOWN INDICATION
     Dosage: UNK, ONCE A DAY (BID (500 BID)
     Route: 065
  12. TACROLIMUS. [Suspect]
     Active Substance: TACROLIMUS
     Indication: HEART TRANSPLANT REJECTION
     Dosage: 0.15 MILLIGRAM/KILOGRAM WITH RESIDUAL TARGET BETWEEN 8 AND 10 NG/ML
     Route: 065
     Dates: start: 2017
  13. VORICONAZOLE. [Suspect]
     Active Substance: VORICONAZOLE
     Indication: BRONCHOPULMONARY ASPERGILLOSIS
     Dosage: 6 MILLIGRAM/KILOGRAM, EVERY OTHER DAY
     Route: 042
  14. VORICONAZOLE. [Suspect]
     Active Substance: VORICONAZOLE
     Dosage: UNK, TWO TIMES A DAY, (1 DAY)
     Route: 048
  15. PREDNISONE TABLET [Suspect]
     Active Substance: PREDNISONE
     Indication: IMMUNOSUPPRESSANT DRUG THERAPY
  16. VORICONAZOLE. [Suspect]
     Active Substance: VORICONAZOLE
     Indication: ASPERGILLUS INFECTION
     Dosage: 4 MILLIGRAM/KILOGRAM, EVERY OTHER DAY
     Route: 042
  17. VORICONAZOLE. [Suspect]
     Active Substance: VORICONAZOLE
     Dosage: UNK, ONCE A DAY BID (6 MG/KG/12 H THE FIRST DAY THEN 4 MG/KG/12 H FOR 7 DAYS
     Route: 042
  18. ISAVUCONAZOLE [Suspect]
     Active Substance: ISAVUCONAZOLE
     Indication: DISSEMINATED ASPERGILLOSIS
     Dosage: 200 MILLIGRAMINITIAL LOADING DOSE THREE TIMES FOR 48 HRS)
     Route: 042
  19. VORICONAZOLE. [Suspect]
     Active Substance: VORICONAZOLE
     Indication: DISSEMINATED ASPERGILLOSIS
     Dosage: 4 MILLIGRAM/KILOGRAM, TWO TIMES A DAY
     Route: 042
  20. VORICONAZOLE. [Suspect]
     Active Substance: VORICONAZOLE
     Dosage: 4 MILLIGRAM/KILOGRAM, TWO TIMES A DAY, (12 H)
     Route: 065
  21. PIPERACILLIN/TAZOBACTAM [Concomitant]
     Active Substance: PIPERACILLIN SODIUM\TAZOBACTAM SODIUM
     Indication: DRUG THERAPY
     Dosage: 200 MILLIGRAM/KILOGRAM, 3 TIMES A DAY
     Route: 065

REACTIONS (12)
  - Acute kidney injury [Recovered/Resolved]
  - Aspergillus infection [Recovered/Resolved]
  - Neurotoxicity [Recovered/Resolved]
  - Photosensitivity reaction [Recovered/Resolved]
  - Nervous system disorder [Recovered/Resolved]
  - Off label use [Unknown]
  - Skin toxicity [Recovered/Resolved]
  - Osteomyelitis fungal [Recovered/Resolved]
  - Peripheral sensory neuropathy [Recovered/Resolved]
  - Disseminated aspergillosis [Recovered/Resolved]
  - Mediastinitis [Recovered/Resolved]
  - Peripheral sensorimotor neuropathy [Recovered/Resolved]
